FAERS Safety Report 7203782-9 (Version None)
Quarter: 2010Q4

REPORT INFORMATION
  Report Type: 
  Country: None (occurrence: None)
  Receive Date: 20101230
  Receipt Date: 20101224
  Transmission Date: 20110411
  Serious: Yes (Death)
  Sender: FDA-Public Use
  Company Number: PHHY2010JP88281

PATIENT
  Sex: Female
  Weight: 44 kg

DRUGS (3)
  1. DIOVAN [Suspect]
     Dosage: 80 MG, QD
     Route: 048
     Dates: start: 20081209
  2. AMLODIPINE [Concomitant]
     Dosage: 05 MG, UNK
     Route: 048
     Dates: start: 20070405
  3. ASPIRIN [Concomitant]
     Dosage: 0.1 G, UNK
     Dates: start: 20070405

REACTIONS (1)
  - PNEUMONIA [None]
